FAERS Safety Report 9229981 (Version 3)
Quarter: 2013Q2

REPORT INFORMATION
  Report Type: Spontaneous
  Country: GB (occurrence: GB)
  Receive Date: 20130415
  Receipt Date: 20130605
  Transmission Date: 20140414
  Serious: Yes (Other)
  Sender: FDA-Public Use
  Company Number: GB-JNJFOC-20130403169

PATIENT
  Sex: Female

DRUGS (5)
  1. RISPERIDONE [Suspect]
     Indication: AFFECTIVE DISORDER
     Route: 048
     Dates: start: 20120925
  2. RISPERIDONE [Suspect]
     Indication: AGITATION
     Route: 048
     Dates: start: 20120925
  3. ALVERINE CITRATE [Concomitant]
     Indication: GASTRIC DISORDER
     Route: 065
     Dates: start: 20110211
  4. LEVOTHYROXINE [Concomitant]
     Indication: THYROID DISORDER
     Route: 065
     Dates: start: 20111001
  5. OMEPRAZOLE [Concomitant]
     Indication: GASTRIC DISORDER
     Route: 065
     Dates: start: 20101211

REACTIONS (2)
  - White blood cell count decreased [Recovered/Resolved]
  - Lower respiratory tract infection [Recovered/Resolved]
